FAERS Safety Report 15424873 (Version 1)
Quarter: 2018Q3

REPORT INFORMATION
  Report Type: Spontaneous
  Country: US (occurrence: US)
  Receive Date: 20180925
  Receipt Date: 20180925
  Transmission Date: 20181010
  Serious: Yes (Other)
  Sender: FDA-Public Use
  Company Number: US-GUERBET-US-20180251

PATIENT
  Sex: Male

DRUGS (1)
  1. OPTIMARK [Suspect]
     Active Substance: GADOVERSETAMIDE
     Indication: NUCLEAR MAGNETIC RESONANCE IMAGING
     Route: 065

REACTIONS (7)
  - Anxiety [Not Recovered/Not Resolved]
  - Skin fibrosis [Not Recovered/Not Resolved]
  - Medication residue present [Not Recovered/Not Resolved]
  - Emotional distress [Not Recovered/Not Resolved]
  - Pain [Not Recovered/Not Resolved]
  - Fibrosis [Not Recovered/Not Resolved]
  - Bone disorder [Not Recovered/Not Resolved]
